FAERS Safety Report 6399262-3 (Version None)
Quarter: 2009Q4

REPORT INFORMATION
  Report Type: 
  Country: None (occurrence: None)
  Receive Date: 20091014
  Receipt Date: 20070723
  Transmission Date: 20100525
  Serious: Yes (Hospitalization, Other)
  Sender: FDA-Public Use
  Company Number: US-ASTRAZENECA-2007UW09616

PATIENT
  Age: 15150 Day
  Sex: Female
  Weight: 77.6 kg

DRUGS (19)
  1. SEROQUEL [Suspect]
     Indication: DEPRESSION
     Route: 048
     Dates: start: 20031201, end: 20050901
  2. SEROQUEL [Suspect]
     Indication: INSOMNIA
     Route: 048
     Dates: start: 20031201, end: 20050901
  3. SEROQUEL [Suspect]
     Indication: HALLUCINATION
     Route: 048
     Dates: start: 20031201, end: 20050901
  4. SEROQUEL [Suspect]
     Dosage: 50-100 MG
     Route: 048
     Dates: start: 20031202
  5. SEROQUEL [Suspect]
     Dosage: 50-100 MG
     Route: 048
     Dates: start: 20031202
  6. SEROQUEL [Suspect]
     Dosage: 50-100 MG
     Route: 048
     Dates: start: 20031202
  7. SEROQUEL [Suspect]
     Route: 048
     Dates: start: 20040418, end: 20040517
  8. SEROQUEL [Suspect]
     Route: 048
     Dates: start: 20040418, end: 20040517
  9. SEROQUEL [Suspect]
     Route: 048
     Dates: start: 20040418, end: 20040517
  10. WELLBUTRIN [Concomitant]
     Dates: start: 20030101
  11. PRILOSEC [Concomitant]
     Dates: start: 19991116
  12. LORTAB [Concomitant]
     Indication: PAIN
     Dates: start: 19991116
  13. ZANTAC [Concomitant]
     Dates: start: 19950530
  14. BUSPAR [Concomitant]
  15. CIMETIDINE [Concomitant]
     Dates: start: 19950530
  16. MEDROL [Concomitant]
     Dates: start: 19950530
  17. CELEXA [Concomitant]
     Dates: start: 20031101
  18. LEXAPRO [Concomitant]
     Dosage: 10-20 MG
     Dates: start: 20031202
  19. PROVERA [Concomitant]
     Dates: start: 19991116

REACTIONS (8)
  - BLOOD TRIGLYCERIDES INCREASED [None]
  - CARDIAC DISORDER [None]
  - DIABETES MELLITUS [None]
  - DIABETES MELLITUS INADEQUATE CONTROL [None]
  - FEELING ABNORMAL [None]
  - PANCREATITIS ACUTE [None]
  - ROAD TRAFFIC ACCIDENT [None]
  - TYPE 2 DIABETES MELLITUS [None]
